FAERS Safety Report 14648706 (Version 2)
Quarter: 2018Q1

REPORT INFORMATION
  Report Type: Report from Study
  Country: US (occurrence: US)
  Receive Date: 20180316
  Receipt Date: 20180322
  Transmission Date: 20180509
  Serious: Yes (Other)
  Sender: FDA-Public Use
  Company Number: US-CLOVIS ONCOLOGY-CLO-2018-000071

PATIENT
  Age: 61 Year
  Sex: Female

DRUGS (5)
  1. RUBRACA [Suspect]
     Active Substance: RUCAPARIB CAMSYLATE
     Dosage: 300 MG, QD
     Route: 048
     Dates: start: 20180207
  2. RUBRACA [Suspect]
     Active Substance: RUCAPARIB CAMSYLATE
     Dosage: 300 MG, BID
     Route: 048
     Dates: start: 20180213, end: 20180221
  3. RUBRACA [Suspect]
     Active Substance: RUCAPARIB CAMSYLATE
     Dosage: 500 MG, BID
     Route: 048
     Dates: start: 20180222
  4. RUBRACA [Suspect]
     Active Substance: RUCAPARIB CAMSYLATE
     Indication: AGRANULOCYTOSIS
     Dosage: 300 MG, BID
     Route: 048
     Dates: start: 20180207, end: 20180212
  5. RUBRACA [Suspect]
     Active Substance: RUCAPARIB CAMSYLATE
     Indication: OVARIAN CANCER
     Dosage: 600 MG, BID
     Route: 048
     Dates: start: 20171229, end: 20180207

REACTIONS (13)
  - Urine output decreased [Recovered/Resolved]
  - Fatigue [Recovering/Resolving]
  - Prescribed underdose [Unknown]
  - Gastrointestinal sounds abnormal [Recovered/Resolved]
  - Dysphagia [Unknown]
  - Diarrhoea [Unknown]
  - Decreased appetite [Recovering/Resolving]
  - Aspartate aminotransferase increased [Recovered/Resolved]
  - Agranulocytosis [Recovered/Resolved]
  - Nausea [Recovering/Resolving]
  - Blood creatinine increased [Recovered/Resolved]
  - Alanine aminotransferase increased [Recovered/Resolved]
  - Hepatic enzyme increased [Recovered/Resolved]

NARRATIVE: CASE EVENT DATE: 2018
